FAERS Safety Report 5693666-X (Version None)
Quarter: 2008Q2

REPORT INFORMATION
  Report Type: 
  Country: None (occurrence: None)
  Receive Date: 20080403
  Receipt Date: 20080325
  Transmission Date: 20081010
  Serious: Yes (Other)
  Sender: FDA-Public Use
  Company Number: US-MERCK-0803USA03978

PATIENT
  Age: 45 Year
  Sex: Male

DRUGS (7)
  1. VYTORIN [Suspect]
     Route: 048
     Dates: start: 20060101, end: 20070101
  2. VYTORIN [Suspect]
     Route: 048
     Dates: start: 20071101
  3. REBIF [Suspect]
     Indication: MULTIPLE SCLEROSIS
     Route: 058
     Dates: start: 20070117, end: 20071025
  4. STATIN (UNSPECIFIED) [Concomitant]
     Route: 065
     Dates: start: 20030101, end: 20070101
  5. CYMBALTA [Suspect]
     Route: 065
     Dates: start: 20040101, end: 20070101
  6. CYMBALTA [Suspect]
     Route: 065
     Dates: start: 20071101
  7. LIPITOR [Concomitant]
     Route: 065
     Dates: end: 20061101

REACTIONS (2)
  - HEPATIC ENZYME INCREASED [None]
  - INJECTION SITE REACTION [None]
